FAERS Safety Report 5322015-1 (Version None)
Quarter: 2007Q2

REPORT INFORMATION
  Report Type: 
  Country: None (occurrence: None)
  Receive Date: 20070508
  Receipt Date: 20070508
  Transmission Date: 20071010
  Serious: No
  Sender: FDA-Public Use
  Company Number: None

PATIENT
  Age: 32 Year
  Sex: Male
  Weight: 63.5036 kg

DRUGS (4)
  1. RISPERDAL [Suspect]
     Indication: PSYCHOTIC DISORDER
     Dosage: 3 MG  1X/DAY  PO
     Route: 048
     Dates: start: 20061027, end: 20070102
  2. SEROQUEL [Concomitant]
  3. WELLBUTRIN XL [Concomitant]
  4. ZYPREXA [Concomitant]

REACTIONS (5)
  - EMOTIONAL DISORDER [None]
  - ERECTILE DYSFUNCTION [None]
  - FEELING ABNORMAL [None]
  - LOSS OF LIBIDO [None]
  - SEXUAL DYSFUNCTION [None]
